FAERS Safety Report 21505139 (Version 1)
Quarter: 2022Q4

REPORT INFORMATION
  Report Type: Spontaneous
  Country: US (occurrence: None)
  Receive Date: 20221025
  Receipt Date: 20221025
  Transmission Date: 20230113
  Serious: No
  Sender: FDA-Public Use
  Company Number: None

PATIENT
  Age: 55 Year
  Sex: Female

DRUGS (1)
  1. ENBREL [Suspect]
     Active Substance: ETANERCEPT
     Dosage: 50MG OTHER SUBCUTANEOUS
     Route: 058
     Dates: start: 2022

REACTIONS (3)
  - Therapy interrupted [None]
  - Urinary tract infection [None]
  - Myocardial infarction [None]

NARRATIVE: CASE EVENT DATE: 20221009
